FAERS Safety Report 17319863 (Version 2)
Quarter: 2020Q1

REPORT INFORMATION
  Report Type: Spontaneous
  Country: US (occurrence: US)
  Receive Date: 20200126
  Receipt Date: 20200302
  Transmission Date: 20200409
  Serious: No
  Sender: FDA-Public Use
  Company Number: US-009507513-2001USA007896

PATIENT
  Age: 72 Year
  Sex: Female

DRUGS (8)
  1. ELIQUIS [Concomitant]
     Active Substance: APIXABAN
  2. FOSAMAX [Concomitant]
     Active Substance: ALENDRONATE SODIUM
  3. BACLOFEN. [Concomitant]
     Active Substance: BACLOFEN
  4. ASMANEX [Suspect]
     Active Substance: MOMETASONE FUROATE
     Indication: CHRONIC OBSTRUCTIVE PULMONARY DISEASE
     Dosage: UNK
     Route: 055
  5. MULTAQ [Concomitant]
     Active Substance: DRONEDARONE
  6. HYDROCHLOROTHIAZIDE. [Concomitant]
     Active Substance: HYDROCHLOROTHIAZIDE
  7. ASMANEX [Suspect]
     Active Substance: MOMETASONE FUROATE
     Dosage: 1 PUFF ORALLY TWICE DAILY
     Route: 055
     Dates: start: 20200114
  8. CALCIUM (UNSPECIFIED) [Concomitant]
     Active Substance: CALCIUM

REACTIONS (5)
  - Product use in unapproved indication [Unknown]
  - Circumstance or information capable of leading to medication error [Unknown]
  - Poor quality device used [Unknown]
  - No adverse event [Unknown]
  - Product quality issue [Unknown]

NARRATIVE: CASE EVENT DATE: 20200114
